FAERS Safety Report 24883718 (Version 1)
Quarter: 2025Q1

REPORT INFORMATION
  Report Type: Spontaneous
  Country: CA (occurrence: CA)
  Receive Date: 20250124
  Receipt Date: 20250124
  Transmission Date: 20250409
  Serious: Yes (Hospitalization, Other)
  Sender: PFIZER
  Company Number: CA-PFIZER INC-202500017089

PATIENT
  Age: 63 Year
  Sex: Male

DRUGS (20)
  1. ABRILADA [Suspect]
     Active Substance: ADALIMUMAB-AFZB
     Indication: Ankylosing spondylitis
     Route: 058
     Dates: start: 20250106
  2. ABRILADA [Suspect]
     Active Substance: ADALIMUMAB-AFZB
     Route: 058
     Dates: start: 20250121
  3. BACLOFEN [Concomitant]
     Active Substance: BACLOFEN
  4. CYCLOSPORINE [Concomitant]
     Active Substance: CYCLOSPORINE
  5. DEXLANSOPRAZOLE [Concomitant]
     Active Substance: DEXLANSOPRAZOLE
  6. FAMOTIDINE [Concomitant]
     Active Substance: FAMOTIDINE
  7. HYDROXYZINE [Concomitant]
     Active Substance: HYDROXYZINE HYDROCHLORIDE
  8. HYDROMORPHONE [Concomitant]
     Active Substance: HYDROMORPHONE
  9. HYDROMORPHONE [Concomitant]
     Active Substance: HYDROMORPHONE
  10. LEMBOREXANT [Concomitant]
     Active Substance: LEMBOREXANT
  11. MOVANTIK [Concomitant]
     Active Substance: NALOXEGOL OXALATE
  12. ONDANSETRON [Concomitant]
     Active Substance: ONDANSETRON
  13. OXYCODONE [Concomitant]
     Active Substance: OXYCODONE
  14. QUININE [Concomitant]
     Active Substance: QUININE
  15. RIZATRIPTAN [Concomitant]
     Active Substance: RIZATRIPTAN
  16. TOPIRAMATE [Concomitant]
     Active Substance: TOPIRAMATE
  17. TAMSULOSIN [Concomitant]
     Active Substance: TAMSULOSIN
  18. FENTANYL [Concomitant]
     Active Substance: FENTANYL
  19. TRAZODONE [Concomitant]
     Active Substance: TRAZODONE HYDROCHLORIDE
  20. ULORIC [Concomitant]
     Active Substance: FEBUXOSTAT

REACTIONS (3)
  - Confusional state [Recovered/Resolved]
  - Disorientation [Recovered/Resolved]
  - Rheumatoid arthritis [Recovered/Resolved]

NARRATIVE: CASE EVENT DATE: 20250101
